FAERS Safety Report 5022535-3 (Version None)
Quarter: 2006Q2

REPORT INFORMATION
  Report Type: 
  Country: None (occurrence: None)
  Receive Date: 20060609
  Receipt Date: 20060221
  Transmission Date: 20061013
  Serious: Yes (Other)
  Sender: FDA-Public Use
  Company Number: DE-BRISTOL-MYERS SQUIBB COMPANY-13294194

PATIENT

DRUGS (1)
  1. KARVEA TABS 300 MG [Suspect]

REACTIONS (1)
  - PSORIASIS [None]
